FAERS Safety Report 5664525-3 (Version None)
Quarter: 2008Q1

REPORT INFORMATION
  Report Type: 
  Country: None (occurrence: None)
  Receive Date: 20080312
  Receipt Date: 20080225
  Transmission Date: 20080703
  Serious: Yes (Hospitalization)
  Sender: FDA-Public Use
  Company Number: 107#08#2008-01119

PATIENT
  Age: 78 Year
  Sex: Male

DRUGS (2)
  1. IBUPROFEN [Suspect]
     Indication: ARTHRALGIA
     Route: 048
  2. BISOPROLOL (BISOPROL) [Concomitant]

REACTIONS (9)
  - BLOOD IMMUNOGLOBULIN E INCREASED [None]
  - CONFUSIONAL STATE [None]
  - EXTENSOR PLANTAR RESPONSE [None]
  - HEADACHE [None]
  - HYPERSENSITIVITY [None]
  - MENINGITIS ASEPTIC [None]
  - NUCHAL RIGIDITY [None]
  - PYREXIA [None]
  - SOMNOLENCE [None]
